FAERS Safety Report 20736504 (Version 4)
Quarter: 2022Q4

REPORT INFORMATION
  Report Type: Spontaneous
  Country: US (occurrence: US)
  Receive Date: 20220421
  Receipt Date: 20221102
  Transmission Date: 20230113
  Serious: No
  Sender: FDA-Public Use
  Company Number: US-PFIZER INC-2021469686

PATIENT
  Age: 63 Year
  Sex: Female

DRUGS (2)
  1. IBRANCE [Suspect]
     Active Substance: PALBOCICLIB
     Dosage: 75 MG
     Dates: start: 20200127
  2. IBRANCE [Suspect]
     Active Substance: PALBOCICLIB
     Dosage: 75 MG
     Dates: start: 20211101

REACTIONS (9)
  - Neoplasm progression [Not Recovered/Not Resolved]
  - Fatigue [Recovered/Resolved]
  - Alopecia [Unknown]
  - Vocal cord paralysis [Unknown]
  - Aphonia [Unknown]
  - Platelet count decreased [Recovered/Resolved]
  - Arthralgia [Recovered/Resolved]
  - Neutrophil count decreased [Recovered/Resolved]
  - White blood cell count decreased [Unknown]
